FAERS Safety Report 10329533 (Version 2)
Quarter: 2014Q3

REPORT INFORMATION
  Report Type: Report from Study
  Country: US (occurrence: US)
  Receive Date: 20140721
  Receipt Date: 20140905
  Transmission Date: 20150326
  Serious: Yes (Hospitalization, Other)
  Sender: FDA-Public Use
  Company Number: US-SA-2014SA095223

PATIENT
  Age: 69 Year
  Sex: Female

DRUGS (4)
  1. NOVOLOG [Concomitant]
     Active Substance: INSULIN ASPART
  2. SOLOSTAR [Concomitant]
     Active Substance: DEVICE
     Dates: start: 2004
  3. LANTUS SOLOSTAR [Suspect]
     Active Substance: INSULIN GLARGINE
     Indication: DIABETES MELLITUS
     Dosage: DOSE:40 UNIT(S)
     Route: 065
  4. LANTUS SOLOSTAR [Suspect]
     Active Substance: INSULIN GLARGINE
     Indication: DIABETES MELLITUS
     Dosage: DOSE: 38-40 UNITS; TWICE A DAY
     Route: 065
     Dates: start: 2004

REACTIONS (4)
  - Cardiac disorder [Not Recovered/Not Resolved]
  - Drug administration error [Unknown]
  - Cardiac pacemaker insertion [Unknown]
  - Malaise [Unknown]

NARRATIVE: CASE EVENT DATE: 2004
